FAERS Safety Report 5315139-6 (Version None)
Quarter: 2007Q2

REPORT INFORMATION
  Report Type: 
  Country: None (occurrence: None)
  Receive Date: 20070427
  Receipt Date: 20070420
  Transmission Date: 20071010
  Serious: Yes (Death)
  Sender: FDA-Public Use
  Company Number: 200704AGG00618

PATIENT
  Age: 56 Year
  Sex: Male

DRUGS (1)
  1. AGGRASTAT [Suspect]
     Indication: ACUTE MYOCARDIAL INFARCTION
     Dosage: INTRAVENOUS BOLUS
     Route: 040
     Dates: start: 20061213, end: 20061214

REACTIONS (3)
  - MYOCARDIAL INFARCTION [None]
  - REOCCLUSION [None]
  - SUDDEN CARDIAC DEATH [None]
